FAERS Safety Report 8097168 (Version 2)
Quarter: 2014Q1

REPORT INFORMATION
  Report Type: Spontaneous
  Country: DE (occurrence: DE)
  Receive Date: 20110819
  Receipt Date: 20140306
  Transmission Date: 20141002
  Serious: Yes (Hospitalization)
  Sender: FDA-Public Use
  Company Number: DE-RANBAXY-2011US-46856

PATIENT
  Age: 63 Year
  Sex: Male

DRUGS (2)
  1. VERAPAMIL [Suspect]
     Indication: BLOOD PRESSURE
     Dosage: MAXIMUM DOSE 120 MG TWICE DAILY
     Route: 065
  2. DOXAZOSIN [Suspect]
     Indication: BLOOD PRESSURE
     Dosage: MAXIMUM DOSE 4 MG TWICE DAILY
     Route: 065

REACTIONS (5)
  - Hypertension [Unknown]
  - Drug ineffective [Unknown]
  - Hypokalaemia [Unknown]
  - Cardiac failure [Unknown]
  - Atrial fibrillation [Unknown]
